FAERS Safety Report 5780092-8 (Version None)
Quarter: 2008Q2

REPORT INFORMATION
  Report Type: 
  Country: None (occurrence: None)
  Receive Date: 20080620
  Receipt Date: 20080617
  Transmission Date: 20081010
  Serious: Yes (Life-Threatening)
  Sender: FDA-Public Use
  Company Number: DE-NOVOPROD-276388

PATIENT
  Sex: Male
  Weight: 62 kg

DRUGS (3)
  1. NOVORAPID [Suspect]
     Indication: TYPE 1 DIABETES MELLITUS
     Dosage: 30-40IU
     Route: 058
     Dates: start: 20030813, end: 20030908
  2. INSUMAN RAPID [Concomitant]
     Dosage: UNK IU, QD
     Route: 058
     Dates: start: 19950101, end: 20080101
  3. INSUMAN BASAL                      /00646002/ [Concomitant]
     Dosage: 50 IU, QD
     Route: 058
     Dates: start: 19950101, end: 20080101

REACTIONS (1)
  - ACUTE LYMPHOCYTIC LEUKAEMIA [None]
